FAERS Safety Report 10146555 (Version 1)
Quarter: 2014Q2

REPORT INFORMATION
  Report Type: Spontaneous
  Country: CO (occurrence: CO)
  Receive Date: 20140501
  Receipt Date: 20140501
  Transmission Date: 20141212
  Serious: Yes (Hospitalization)
  Sender: FDA-Public Use
  Company Number: CO-SA-2014SA054647

PATIENT
  Sex: Female

DRUGS (2)
  1. THYROGEN [Suspect]
     Indication: PRODUCT USED FOR UNKNOWN INDICATION
     Route: 030
  2. IODINE (131 I) [Suspect]
     Indication: THYROID CANCER
     Route: 065

REACTIONS (3)
  - Pneumonia [Unknown]
  - Abdominal pain upper [Unknown]
  - Oral dysaesthesia [Unknown]
